FAERS Safety Report 19939650 (Version 2)
Quarter: 2021Q4

REPORT INFORMATION
  Report Type: Spontaneous
  Country: CN (occurrence: CN)
  Receive Date: 20211011
  Receipt Date: 20211013
  Transmission Date: 20220303
  Serious: Yes (Other)
  Sender: FDA-Public Use
  Company Number: CN-PFIZER INC-202101289045

PATIENT
  Age: 8 Year
  Sex: Male
  Weight: 34 kg

DRUGS (5)
  1. METHYLPREDNISOLONE [Suspect]
     Active Substance: METHYLPREDNISOLONE
     Indication: Nephrotic syndrome
     Dosage: 16 MG, 3X/DAY
     Route: 048
     Dates: start: 20210624, end: 20210715
  2. METHYLPREDNISOLONE [Suspect]
     Active Substance: METHYLPREDNISOLONE
     Dosage: 48 MG, DAILY
     Route: 048
     Dates: start: 20210716, end: 20210722
  3. METHYLPREDNISOLONE [Suspect]
     Active Substance: METHYLPREDNISOLONE
     Dosage: 48 MG, ALTERNATE DAY (QOD )
     Route: 048
     Dates: start: 20210723, end: 20210819
  4. METHYLPREDNISOLONE [Suspect]
     Active Substance: METHYLPREDNISOLONE
     Dosage: 44 MG, ALTERNATE DAY (QOD)
     Route: 048
     Dates: start: 20210820, end: 20210829
  5. METHYLPREDNISOLONE [Suspect]
     Active Substance: METHYLPREDNISOLONE
     Dosage: 44 MG, DAILY (16MG/MORNING, 16MG/NOON, 12MG/EVENING)
     Route: 048
     Dates: start: 20210830

REACTIONS (1)
  - Ocular hypertension [Recovering/Resolving]

NARRATIVE: CASE EVENT DATE: 20210901
